FAERS Safety Report 8897013 (Version 1)
Quarter: 2012Q4

REPORT INFORMATION
  Report Type: 
  Country: US (occurrence: US)
  Receive Date: 20121108
  Receipt Date: 20121108
  Transmission Date: 20130627
  Serious: No
  Sender: FDA-Public Use
  Company Number: US-AMGEN-USASP2012029589

PATIENT
  Age: 45 Year
  Sex: Male

DRUGS (5)
  1. ENBREL [Suspect]
     Indication: RHEUMATOID ARTHRITIS
     Dosage: 25 mg, 2 times/wk
  2. METHOTREXATE [Concomitant]
     Dosage: UNK mg, UNK
  3. FOLIC ACID [Concomitant]
     Dosage: UNK mg, UNK
  4. PAXIL [Concomitant]
     Dosage: UNK mg, UNK
  5. AMBIEN [Concomitant]
     Dosage: UNK

REACTIONS (1)
  - Nausea [Unknown]
